FAERS Safety Report 7327217-0 (Version None)
Quarter: 2011Q1

REPORT INFORMATION
  Report Type: 
  Country: None (occurrence: None)
  Receive Date: 20110302
  Receipt Date: 20110225
  Transmission Date: 20110831
  Serious: Yes (Death)
  Sender: FDA-Public Use
  Company Number: BR-PFIZER INC-2011041635

PATIENT
  Age: 94 Year
  Sex: Female

DRUGS (1)
  1. FRONTAL [Suspect]
     Dosage: 0.5 MG, 2X/DAY
     Route: 048
     Dates: start: 20080416

REACTIONS (1)
  - DEATH [None]
